FAERS Safety Report 24137329 (Version 2)
Quarter: 2024Q3

REPORT INFORMATION
  Report Type: Spontaneous
  Country: US (occurrence: US)
  Receive Date: 20240725
  Receipt Date: 20240823
  Transmission Date: 20241017
  Serious: No
  Sender: IPSEN
  Company Number: US-IPSEN Group, Research and Development-2024-14094

PATIENT
  Age: 58 Year
  Sex: Female

DRUGS (1)
  1. IQIRVO [Suspect]
     Active Substance: ELAFIBRANOR
     Indication: Primary biliary cholangitis
     Route: 048

REACTIONS (3)
  - Abdominal distension [Unknown]
  - Back pain [Unknown]
  - Rash [Unknown]
